FAERS Safety Report 4714055-8 (Version None)
Quarter: 2005Q3

REPORT INFORMATION
  Report Type: 
  Country: None (occurrence: None)
  Receive Date: 20050712
  Receipt Date: 20050704
  Transmission Date: 20060218
  Serious: Yes (Hospitalization)
  Sender: FDA-Public Use
  Company Number: 2005-07-0114

PATIENT
  Age: 70 Year
  Sex: Male

DRUGS (5)
  1. CLARITIN [Suspect]
     Indication: PRURITUS
     Dosage: 10 MG ORAL
     Route: 048
     Dates: start: 20050101, end: 20050501
  2. ANGIOTENSIN    CONVERTING ENZYME INHIBITOR (NOS) [Concomitant]
  3. ANTIHYPERTENSIVE AGENT [Concomitant]
  4. ASPIRIN [Concomitant]
  5. ZYLORIC TABLETS [Concomitant]

REACTIONS (3)
  - EOSINOPHIL COUNT INCREASED [None]
  - LYMPHADENOPATHY MEDIASTINAL [None]
  - THROMBOCYTOPENIA [None]
